FAERS Safety Report 8070521-1 (Version None)
Quarter: 2012Q1

REPORT INFORMATION
  Report Type: 
  Country: None (occurrence: None)
  Receive Date: 20120125
  Receipt Date: 20120119
  Transmission Date: 20120608
  Serious: Yes (Hospitalization)
  Sender: FDA-Public Use
  Company Number: FR-ABBOTT-12P-056-0895418-00

PATIENT
  Sex: Female

DRUGS (1)
  1. HUMIRA [Suspect]
     Indication: SAPHO SYNDROME
     Route: 058
     Dates: start: 20110901, end: 20111201

REACTIONS (7)
  - RASH [None]
  - PRURIGO [None]
  - SKIN LESION [None]
  - BRONCHITIS [None]
  - RASH PUSTULAR [None]
  - ECZEMA ASTEATOTIC [None]
  - BODY TINEA [None]
